FAERS Safety Report 9184187 (Version 1)
Quarter: 2013Q1

REPORT INFORMATION
  Report Type: Spontaneous
  Country: US (occurrence: US)
  Receive Date: 20130322
  Receipt Date: 20130322
  Transmission Date: 20140127
  Serious: No
  Sender: FDA-Public Use
  Company Number: US-BRISTOL-MYERS SQUIBB COMPANY-16457566

PATIENT
  Age: 77 Year
  Sex: Male
  Weight: 73 kg

DRUGS (1)
  1. ERBITUX [Suspect]
     Indication: LIP AND/OR ORAL CAVITY CANCER
     Dosage: FINEL TREATMENT ON 14MAR2012?NO OF INF:4
     Route: 042

REACTIONS (4)
  - Skin disorder [Unknown]
  - Dry eye [Unknown]
  - Dry skin [Unknown]
  - Hypersensitivity [Unknown]
